FAERS Safety Report 18290964 (Version 1)
Quarter: 2020Q3

REPORT INFORMATION
  Report Type: Spontaneous
  Country: JP (occurrence: JP)
  Receive Date: 20200921
  Receipt Date: 20200921
  Transmission Date: 20201103
  Serious: Yes (Other)
  Sender: FDA-Public Use
  Company Number: JP-CELGENEUS-JPN-20200705388

PATIENT
  Age: 75 Year
  Sex: Male

DRUGS (3)
  1. VIDAZA [Suspect]
     Active Substance: AZACITIDINE
     Indication: PRODUCT USED FOR UNKNOWN INDICATION
     Route: 065
  2. VIDAZA [Suspect]
     Active Substance: AZACITIDINE
     Dosage: 60 MILLIGRAM
     Route: 058
     Dates: start: 20200713
  3. VIDAZA [Suspect]
     Active Substance: AZACITIDINE
     Dosage: 111 MILLIGRAM
     Route: 065
     Dates: start: 20200604

REACTIONS (2)
  - Sepsis [Recovered/Resolved]
  - Beta haemolytic streptococcal infection [Recovered/Resolved]

NARRATIVE: CASE EVENT DATE: 20200623
